FAERS Safety Report 7769098-7 (Version None)
Quarter: 2011Q3

REPORT INFORMATION
  Report Type: 
  Country: None (occurrence: None)
  Receive Date: 20110920
  Receipt Date: 20110909
  Transmission Date: 20111222
  Serious: Yes (Other)
  Sender: FDA-Public Use
  Company Number: 2011-3727

PATIENT
  Sex: 0

DRUGS (1)
  1. DYSPORT [Suspect]
     Indication: PRODUCT USED FOR UNKNOWN INDICATION
     Dosage: ,SINGLE CYCLE

REACTIONS (2)
  - CONDITION AGGRAVATED [None]
  - CONVULSION [None]
